FAERS Safety Report 5208897-2 (Version None)
Quarter: 2007Q1

REPORT INFORMATION
  Report Type: 
  Country: None (occurrence: None)
  Receive Date: 20070116
  Receipt Date: 20070105
  Transmission Date: 20070707
  Serious: Yes (Hospitalization)
  Sender: FDA-Public Use
  Company Number: GB-AVENTIS-200710193GDDC

PATIENT
  Age: 19 Year
  Sex: Male

DRUGS (2)
  1. METRONIDAZOLE [Suspect]
     Route: 042
     Dates: start: 20061208, end: 20061211
  2. PARACETAMOL [Concomitant]

REACTIONS (1)
  - LEUKOPENIA [None]
